FAERS Safety Report 7727171-3 (Version None)
Quarter: 2011Q3

REPORT INFORMATION
  Report Type: 
  Country: None (occurrence: None)
  Receive Date: 20110902
  Receipt Date: 20110823
  Transmission Date: 20111222
  Serious: Yes (Hospitalization)
  Sender: FDA-Public Use
  Company Number: JP-ELI_LILLY_AND_COMPANY-JP201106008671

PATIENT
  Age: 59 Year
  Sex: Male
  Weight: 105 kg

DRUGS (8)
  1. BYETTA [Suspect]
     Indication: DIABETES MELLITUS
     Dosage: 5 UG, BID
     Route: 058
     Dates: start: 20110527
  2. ASPIRIN [Concomitant]
     Indication: PROPHYLAXIS
     Dosage: 100 MG, QD
     Route: 048
     Dates: start: 20090819
  3. RABEPRAZOLE SODIUM [Concomitant]
     Indication: PROPHYLAXIS
     Dosage: 10 MG, QD
     Route: 048
     Dates: start: 20090819
  4. METFORMIN HCL [Concomitant]
     Indication: DIABETES MELLITUS
     Dosage: 1500 MG, QD
     Route: 048
     Dates: start: 20080904, end: 20110516
  5. TRICHLORMETHIAZIDE [Concomitant]
     Indication: HYPERTENSION
     Dosage: 2 MG, QD
     Route: 048
     Dates: start: 20100707, end: 20110527
  6. ADALAT [Concomitant]
     Indication: HYPERTENSION
     Dosage: 40 MG, BID
     Route: 048
     Dates: start: 20080820, end: 20110603
  7. MICARDIS [Concomitant]
     Indication: HYPERTENSION
     Dosage: 80 MG, BID
     Route: 048
     Dates: start: 20080911, end: 20110603
  8. METFORMIN HCL [Concomitant]
     Dosage: 2250 MG, QD
     Route: 048
     Dates: start: 20110517, end: 20110614

REACTIONS (8)
  - RENAL IMPAIRMENT [None]
  - ERUCTATION [None]
  - DECREASED APPETITE [None]
  - MALAISE [None]
  - OFF LABEL USE [None]
  - FLUID INTAKE REDUCED [None]
  - HYPOPHAGIA [None]
  - DEHYDRATION [None]
